FAERS Safety Report 7623409-1 (Version None)
Quarter: 2011Q3

REPORT INFORMATION
  Report Type: 
  Country: None (occurrence: None)
  Receive Date: 20110720
  Receipt Date: 20110718
  Transmission Date: 20111222
  Serious: Yes (Disabling, Other)
  Sender: FDA-Public Use
  Company Number: US-JNJFOC-20080900432

PATIENT
  Sex: Female

DRUGS (1)
  1. LEVAQUIN [Suspect]
     Indication: URINARY TRACT INFECTION
     Dates: start: 20020901

REACTIONS (5)
  - TENDONITIS [None]
  - DEPRESSION [None]
  - TENDON RUPTURE [None]
  - FOOT DEFORMITY [None]
  - MUSCLE MASS [None]
